FAERS Safety Report 14312115 (Version 3)
Quarter: 2018Q1

REPORT INFORMATION
  Report Type: Spontaneous
  Country: US (occurrence: US)
  Receive Date: 20171221
  Receipt Date: 20180302
  Transmission Date: 20180509
  Serious: Yes (Life-Threatening, Hospitalization, Other)
  Sender: FDA-Public Use
  Company Number: US-CONCORDIA PHARMACEUTICALS INC.-GSH201712-006671

PATIENT
  Sex: Female
  Weight: 67.35 kg

DRUGS (64)
  1. URSODIOL (URSODEOXYCHOLIC ACID) CAPSULE [Suspect]
     Active Substance: URSODIOL
     Indication: WEIGHT DECREASED
     Route: 048
  2. TRAZODONE [Concomitant]
     Active Substance: TRAZODONE HYDROCHLORIDE
  3. CYTOTEC [Concomitant]
     Active Substance: MISOPROSTOL
  4. ALPRAZOLAM. [Concomitant]
     Active Substance: ALPRAZOLAM
  5. LISINOPRIL. [Concomitant]
     Active Substance: LISINOPRIL
  6. VESICARE [Concomitant]
     Active Substance: SOLIFENACIN SUCCINATE
  7. ASPIRIN. [Concomitant]
     Active Substance: ASPIRIN
  8. SYNVISC-ONE [Concomitant]
     Active Substance: HYALURONATE SODIUM
     Dates: start: 20110524
  9. ESTRACE [Concomitant]
     Active Substance: ESTRADIOL
  10. POLYETHYLENE GLYCOL 3350. [Concomitant]
     Active Substance: POLYETHYLENE GLYCOL 3350
  11. CRANBERRY EXTRACT [Concomitant]
     Active Substance: CRANBERRY JUICE
  12. AZOR [Concomitant]
     Active Substance: AMLODIPINE BESYLATE\OLMESARTAN MEDOXOMIL
  13. VICOPROFEN [Concomitant]
     Active Substance: HYDROCODONE BITARTRATE\IBUPROFEN
  14. PLAQUENIL [Suspect]
     Active Substance: HYDROXYCHLOROQUINE SULFATE
     Indication: PRODUCT USED FOR UNKNOWN INDICATION
     Dosage: UNKNOWN START DATE
     Route: 065
     Dates: start: 2009
  15. PLAQUENIL [Suspect]
     Active Substance: HYDROXYCHLOROQUINE SULFATE
     Route: 065
     Dates: start: 20120314
  16. ENBREL [Suspect]
     Active Substance: ETANERCEPT
     Indication: RHEUMATOID ARTHRITIS
     Route: 058
     Dates: start: 20110105, end: 20111114
  17. MTX [Concomitant]
     Active Substance: METHOTREXATE SODIUM
  18. REMICADE [Concomitant]
     Active Substance: INFLIXIMAB
  19. PREDNISONE. [Concomitant]
     Active Substance: PREDNISONE
  20. VITAMIN B12 [Concomitant]
     Active Substance: CYANOCOBALAMIN
  21. FISH OIL [Concomitant]
     Active Substance: FISH OIL
  22. ZINC SULFATE [Concomitant]
     Active Substance: ZINC SULFATE\ZINC SULFATE ANHYDROUS
  23. ASA [Concomitant]
     Active Substance: ASPIRIN
  24. WELCHOL [Concomitant]
     Active Substance: COLESEVELAM HYDROCHLORIDE
  25. BENICAR HCT [Concomitant]
     Active Substance: HYDROCHLOROTHIAZIDE\OLMESARTAN MEDOXOMIL
  26. ARAVA [Concomitant]
     Active Substance: LEFLUNOMIDE
  27. TYLENOL EXTRA STRENGTH [Concomitant]
     Active Substance: ACETAMINOPHEN
  28. PERCOCET [Concomitant]
     Active Substance: ACETAMINOPHEN\OXYCODONE HYDROCHLORIDE
  29. PREDNISONE. [Concomitant]
     Active Substance: PREDNISONE
  30. ZYRTEC [Concomitant]
     Active Substance: CETIRIZINE HYDROCHLORIDE
  31. NASONEX [Concomitant]
     Active Substance: MOMETASONE FUROATE
  32. SYNVISC-ONE [Concomitant]
     Active Substance: HYALURONATE SODIUM
     Dates: start: 20100430
  33. MILK OF MAGNESIA [Concomitant]
     Active Substance: MAGNESIUM HYDROXIDE
  34. MVI [Concomitant]
     Active Substance: VITAMINS
  35. GLUCOSAMINE CHONDROITIN [Concomitant]
     Active Substance: CHONDROITIN SULFATE (BOVINE)\GLUCOSAMINE HYDROCHLORIDE
  36. VIOXX [Concomitant]
     Active Substance: ROFECOXIB
  37. FLEXERIL [Concomitant]
     Active Substance: CYCLOBENZAPRINE HYDROCHLORIDE
  38. PREDNISONE. [Concomitant]
     Active Substance: PREDNISONE
     Dates: start: 20131120
  39. XELJANZ XR [Concomitant]
     Active Substance: TOFACITINIB CITRATE
  40. SKELAXIN [Concomitant]
     Active Substance: METAXALONE
  41. SYNVISC (HYLAN G-F 20) [Concomitant]
     Dates: start: 20160203, end: 20160203
  42. REFRESH LIQUIGEL [Concomitant]
     Active Substance: CARBOXYMETHYLCELLULOSE SODIUM
  43. ALLERGY RELIEF [Concomitant]
  44. MOMETASONE [Concomitant]
     Active Substance: MOMETASONE
  45. COMPAZINE [Concomitant]
     Active Substance: PROCHLORPERAZINE MALEATE
  46. COMPAZINE [Concomitant]
     Active Substance: PROCHLORPERAZINE MALEATE
  47. TOPROL XL [Concomitant]
     Active Substance: METOPROLOL SUCCINATE
  48. ASPIR 81 [Concomitant]
  49. PRILOSEC [Concomitant]
     Active Substance: OMEPRAZOLE MAGNESIUM
  50. PLAQUENIL [Suspect]
     Active Substance: HYDROXYCHLOROQUINE SULFATE
     Indication: RHEUMATOID ARTHRITIS
     Route: 065
     Dates: start: 2008
  51. FOSAMAX [Suspect]
     Active Substance: ALENDRONATE SODIUM
     Indication: PAIN IN JAW
     Route: 065
     Dates: start: 201201, end: 201309
  52. HUMIRA [Concomitant]
     Active Substance: ADALIMUMAB
  53. SYNVISC (HYLAN G-F 20) [Concomitant]
     Dates: start: 201608, end: 201608
  54. MICONAZOLE NITRATE. [Concomitant]
     Active Substance: MICONAZOLE NITRATE
  55. CALCIUM + VITAMIN D [Concomitant]
     Active Substance: CALCIUM\VITAMIN D
  56. LIDOCAINE. [Concomitant]
     Active Substance: LIDOCAINE
  57. NEXIUM [Concomitant]
     Active Substance: ESOMEPRAZOLE MAGNESIUM
  58. ETODOLAC. [Concomitant]
     Active Substance: ETODOLAC
  59. CALCIUM [Concomitant]
     Active Substance: CALCIUM
  60. SYNVISC-ONE [Concomitant]
     Active Substance: HYALURONATE SODIUM
     Dates: start: 20120404
  61. SYNVISC (HYLAN G-F 20) [Concomitant]
     Dates: start: 20170822
  62. MISOPROSTOL. [Concomitant]
     Active Substance: MISOPROSTOL
  63. ARTHROTEC [Concomitant]
     Active Substance: DICLOFENAC SODIUM\MISOPROSTOL
  64. CITRACAL [Concomitant]
     Active Substance: CALCIUM CITRATE

REACTIONS (39)
  - Dry eye [Unknown]
  - Respiratory failure [Recovered/Resolved]
  - Pulmonary arterial hypertension [Unknown]
  - Spinal column stenosis [Unknown]
  - Depression [Unknown]
  - Road traffic accident [Unknown]
  - Biliary cirrhosis [Unknown]
  - Drug hypersensitivity [Unknown]
  - Drug intolerance [Unknown]
  - Pruritus [Unknown]
  - Ocular hyperaemia [Unknown]
  - Pneumonitis [Recovered/Resolved]
  - Interstitial lung disease [Unknown]
  - Sleep disorder [Unknown]
  - Constipation [Unknown]
  - Cushingoid [Unknown]
  - Pelvic fracture [Unknown]
  - Pain in jaw [Recovered/Resolved]
  - Syncope [Unknown]
  - Ill-defined disorder [Unknown]
  - Carpal tunnel syndrome [Unknown]
  - Peripheral nerve lesion [Unknown]
  - Feeling jittery [Unknown]
  - Alopecia [Unknown]
  - Deafness [Not Recovered/Not Resolved]
  - Neuropathy peripheral [Unknown]
  - Intervertebral disc degeneration [Unknown]
  - Urinary tract infection [Unknown]
  - Rheumatoid arthritis [Unknown]
  - Osteoarthritis [Unknown]
  - Rotator cuff syndrome [Unknown]
  - Anxiety [Unknown]
  - Pulmonary mass [Unknown]
  - Therapeutic procedure [Unknown]
  - Organising pneumonia [Unknown]
  - Aortic valve stenosis [Unknown]
  - Weight decreased [Unknown]
  - Increased appetite [Unknown]
  - Injury [Unknown]
